FAERS Safety Report 12021622 (Version 1)
Quarter: 2016Q1

REPORT INFORMATION
  Report Type: Report from Study
  Country: US (occurrence: US)
  Receive Date: 20160206
  Receipt Date: 20160206
  Transmission Date: 20160526
  Serious: No
  Sender: FDA-Public Use
  Company Number: US-ABBVIE-15K-163-1471190-00

PATIENT
  Age: 73 Year
  Sex: Female
  Weight: 90.8 kg

DRUGS (2)
  1. GABAPENTIN. [Concomitant]
     Active Substance: GABAPENTIN
     Indication: MYALGIA
  2. HUMIRA [Suspect]
     Active Substance: ADALIMUMAB
     Indication: MYALGIA
     Route: 058
     Dates: start: 201411

REACTIONS (4)
  - Pain in extremity [Recovered/Resolved]
  - Musculoskeletal pain [Recovered/Resolved]
  - Pain in extremity [Not Recovered/Not Resolved]
  - Fluid retention [Recovered/Resolved]

NARRATIVE: CASE EVENT DATE: 201411
